FAERS Safety Report 4282963-0 (Version None)
Quarter: 2004Q1

REPORT INFORMATION
  Report Type: 
  Country: None (occurrence: None)
  Receive Date: 20040130
  Receipt Date: 20030320
  Transmission Date: 20041129
  Serious: Yes (Other)
  Sender: FDA-Public Use
  Company Number: PHNU2003DE01367

PATIENT
  Sex: Female

DRUGS (2)
  1. CIBACALCIN [Suspect]
     Indication: OSTEOPOROSIS
  2. CALCITONIN SALMON [Suspect]
     Indication: OSTEOPOROSIS

REACTIONS (2)
  - HEPATITIS C [None]
  - MENTAL DISORDER [None]
